FAERS Safety Report 16531103 (Version 10)
Quarter: 2025Q2

REPORT INFORMATION
  Report Type: Spontaneous
  Country: SK (occurrence: SK)
  Receive Date: 20190704
  Receipt Date: 20250609
  Transmission Date: 20250717
  Serious: Yes (Hospitalization, Other)
  Sender: NOVARTIS
  Company Number: PHHY2019SK152049

PATIENT
  Age: 53 Year
  Sex: Female

DRUGS (40)
  1. LETROZOLE [Suspect]
     Active Substance: LETROZOLE
     Indication: Breast cancer
     Route: 065
  2. DOCETAXEL [Suspect]
     Active Substance: DOCETAXEL
     Indication: Breast cancer
     Route: 065
  3. DOCETAXEL [Suspect]
     Active Substance: DOCETAXEL
     Route: 065
  4. FUROSEMIDE [Suspect]
     Active Substance: FUROSEMIDE
     Indication: Diuretic therapy
     Route: 065
  5. FUROSEMIDE [Suspect]
     Active Substance: FUROSEMIDE
     Route: 065
  6. DOXORUBICIN [Suspect]
     Active Substance: DOXORUBICIN
     Indication: Breast cancer
     Route: 065
  7. DOXORUBICIN [Suspect]
     Active Substance: DOXORUBICIN
     Route: 065
  8. IVABRADINE [Suspect]
     Active Substance: IVABRADINE
     Indication: Cardiac failure chronic
     Route: 065
  9. CANDESARTAN [Suspect]
     Active Substance: CANDESARTAN
     Indication: Dilated cardiomyopathy
     Route: 048
     Dates: start: 201603
  10. CANDESARTAN [Suspect]
     Active Substance: CANDESARTAN
     Indication: Cardiac failure chronic
  11. CANDESARTAN [Suspect]
     Active Substance: CANDESARTAN
     Indication: Diuretic therapy
  12. CYCLOPHOSPHAMIDE [Suspect]
     Active Substance: CYCLOPHOSPHAMIDE
     Indication: Breast cancer
     Route: 065
  13. CYCLOPHOSPHAMIDE [Suspect]
     Active Substance: CYCLOPHOSPHAMIDE
     Route: 065
  14. METOPROLOL TARTRATE [Suspect]
     Active Substance: METOPROLOL TARTRATE
     Indication: Product used for unknown indication
     Route: 065
  15. EPLERENONE [Suspect]
     Active Substance: EPLERENONE
     Indication: Cardiac failure chronic
     Route: 065
     Dates: start: 201603
  16. ADRIAMYCIN [Suspect]
     Active Substance: DOXORUBICIN HYDROCHLORIDE
     Indication: Breast cancer
     Route: 065
  17. ADRIAMYCIN [Suspect]
     Active Substance: DOXORUBICIN HYDROCHLORIDE
     Route: 065
  18. TRASTUZUMAB [Suspect]
     Active Substance: TRASTUZUMAB
     Indication: Breast cancer
     Route: 065
  19. TRASTUZUMAB [Suspect]
     Active Substance: TRASTUZUMAB
     Indication: Breast cancer
     Route: 065
  20. SACUBITRIL\VALSARTAN [Concomitant]
     Active Substance: SACUBITRIL\VALSARTAN
     Indication: Product used for unknown indication
     Route: 065
  21. NALOXONE [Concomitant]
     Active Substance: NALOXONE
     Indication: Product used for unknown indication
     Route: 065
  22. Neoton [Concomitant]
     Indication: Product used for unknown indication
     Route: 065
  23. NOREPINEPHRINE [Concomitant]
     Active Substance: NOREPINEPHRINE
     Indication: Product used for unknown indication
     Route: 065
  24. NOREPINEPHRINE [Concomitant]
     Active Substance: NOREPINEPHRINE
     Route: 065
  25. ALLOPURINOL [Concomitant]
     Active Substance: ALLOPURINOL
     Indication: Product used for unknown indication
     Route: 065
  26. ALLOPURINOL [Concomitant]
     Active Substance: ALLOPURINOL
     Route: 065
  27. RIVAROXABAN [Concomitant]
     Active Substance: RIVAROXABAN
     Indication: Product used for unknown indication
     Route: 065
  28. LEVOSIMENDAN [Concomitant]
     Active Substance: LEVOSIMENDAN
     Indication: Product used for unknown indication
     Route: 065
  29. LEVOCARNITINE [Concomitant]
     Active Substance: LEVOCARNITINE
     Indication: Product used for unknown indication
     Route: 065
  30. CARVEDILOL [Concomitant]
     Active Substance: CARVEDILOL
     Indication: Product used for unknown indication
     Route: 065
  31. ACETAMINOPHEN [Concomitant]
     Active Substance: ACETAMINOPHEN
     Indication: Product used for unknown indication
     Route: 065
  32. SPIRONOLACTONE [Concomitant]
     Active Substance: SPIRONOLACTONE
     Indication: Product used for unknown indication
     Route: 065
  33. TRANDOLAPRIL [Concomitant]
     Active Substance: TRANDOLAPRIL
     Indication: Product used for unknown indication
     Route: 065
  34. TRANDOLAPRIL [Concomitant]
     Active Substance: TRANDOLAPRIL
     Route: 065
  35. METAMIZOLE [Concomitant]
     Active Substance: METAMIZOLE
     Indication: Product used for unknown indication
     Route: 065
  36. TRIMETAZIDINE [Concomitant]
     Active Substance: TRIMETAZIDINE
     Indication: Product used for unknown indication
     Route: 065
  37. COENZYME Q10 [Concomitant]
     Active Substance: DIETARY SUPPLEMENT\UBIDECARENONE
     Indication: Product used for unknown indication
     Route: 065
  38. MAGNESIUM [Concomitant]
     Active Substance: MAGNESIUM
     Indication: Product used for unknown indication
     Route: 065
  39. NALOXONE HYDROCHLORIDE\OXYCODONE HYDROCHLORIDE [Concomitant]
     Active Substance: NALOXONE HYDROCHLORIDE\OXYCODONE HYDROCHLORIDE
     Indication: Product used for unknown indication
     Route: 065
  40. ACETAMINOPHEN [Concomitant]
     Active Substance: ACETAMINOPHEN
     Indication: Product used for unknown indication
     Route: 065

REACTIONS (13)
  - Dilated cardiomyopathy [Recovering/Resolving]
  - Cardiac failure chronic [Recovering/Resolving]
  - Ventricular hypokinesia [Recovering/Resolving]
  - Fatigue [Recovering/Resolving]
  - Cough [Recovering/Resolving]
  - Pulmonary congestion [Recovering/Resolving]
  - Orthopnoea [Recovering/Resolving]
  - Dyspnoea [Recovering/Resolving]
  - Oedema peripheral [Recovered/Resolved]
  - Tachypnoea [Recovering/Resolving]
  - Obesity [Unknown]
  - Dizziness [Recovered/Resolved]
  - Spinal pain [Unknown]

NARRATIVE: CASE EVENT DATE: 20160101
